FAERS Safety Report 18366769 (Version 2)
Quarter: 2020Q4

REPORT INFORMATION
  Report Type: Spontaneous
  Country: US (occurrence: US)
  Receive Date: 20201009
  Receipt Date: 20201105
  Transmission Date: 20210114
  Serious: Yes (Hospitalization, Other)
  Sender: FDA-Public Use
  Company Number: US-ASTRAZENECA-2020SF27677

PATIENT
  Age: 26048 Day
  Sex: Male
  Weight: 117.9 kg

DRUGS (42)
  1. CHERATUSSIN [Concomitant]
     Active Substance: AMMONIUM CHLORIDE\DEXTROMETHORPHAN\SODIUM CITRATE
  2. MELOXICAM. [Concomitant]
     Active Substance: MELOXICAM
  3. TOPROL XL [Concomitant]
     Active Substance: METOPROLOL SUCCINATE
  4. MELATONIN [Concomitant]
     Active Substance: MELATONIN
  5. XIGDUO XR [Suspect]
     Active Substance: DAPAGLIFLOZIN PROPANEDIOL\METFORMIN HYDROCHLORIDE
     Indication: TYPE 2 DIABETES MELLITUS
     Route: 048
     Dates: start: 20150401, end: 201509
  6. XIGDUO XR [Suspect]
     Active Substance: DAPAGLIFLOZIN PROPANEDIOL\METFORMIN HYDROCHLORIDE
     Indication: WEIGHT DECREASED
     Route: 048
     Dates: start: 20150401, end: 201509
  7. ALBUTEROL SULFATE. [Concomitant]
     Active Substance: ALBUTEROL SULFATE
  8. TRULICITY [Concomitant]
     Active Substance: DULAGLUTIDE
  9. VITAMIN D3 [Concomitant]
     Active Substance: CHOLECALCIFEROL
  10. HUMALOG [Concomitant]
     Active Substance: INSULIN LISPRO
  11. ASPIRIN. [Concomitant]
     Active Substance: ASPIRIN
  12. XIGDUO XR [Suspect]
     Active Substance: DAPAGLIFLOZIN PROPANEDIOL\METFORMIN HYDROCHLORIDE
     Indication: BLOOD PRESSURE ABNORMAL
     Route: 048
     Dates: start: 20150401, end: 201509
  13. AMITRIPTYLINE [Concomitant]
     Active Substance: AMITRIPTYLINE
  14. JANUVIA [Concomitant]
     Active Substance: SITAGLIPTIN PHOSPHATE
  15. METFORMIN [Concomitant]
     Active Substance: METFORMIN HYDROCHLORIDE
  16. PANTOPRAZOLE [Concomitant]
     Active Substance: PANTOPRAZOLE
  17. ROPINIROLE. [Concomitant]
     Active Substance: ROPINIROLE
  18. CHROMIUM PICOLINATE [Concomitant]
     Active Substance: CHROMIUM PICOLINATE
  19. VITAMIN E [Concomitant]
     Active Substance: .ALPHA.-TOCOPHEROL
  20. AMOXICILLIN. [Concomitant]
     Active Substance: AMOXICILLIN
  21. METANX [Concomitant]
     Active Substance: LEVOMEFOLATE CALCIUM\METHYLCOBALAMIN\PYRIDOXAL PHOSPHATE ANHYDROUS
  22. PRAVASTATIN. [Concomitant]
     Active Substance: PRAVASTATIN
  23. CYANOCOBALAMIN. [Concomitant]
     Active Substance: CYANOCOBALAMIN
  24. OXYCODONE-ACETAMINOPHEN [Concomitant]
     Active Substance: ACETAMINOPHEN\OXYCODONE HYDROCHLORIDE
  25. JANUMET [Concomitant]
     Active Substance: METFORMIN HYDROCHLORIDE\SITAGLIPTIN PHOSPHATE
  26. LOSARTAN. [Concomitant]
     Active Substance: LOSARTAN
  27. PRAMIPEXOLE. [Concomitant]
     Active Substance: PRAMIPEXOLE
  28. AMITRIPTYLINE HYDROCHLORIDE. [Concomitant]
     Active Substance: AMITRIPTYLINE HYDROCHLORIDE
  29. CHOLINE [Concomitant]
     Active Substance: CHOLINE
  30. HYDROCODONE [Concomitant]
     Active Substance: HYDROCODONE
  31. FLUOROURACIL. [Concomitant]
     Active Substance: FLUOROURACIL
  32. NITROGLYCERINE [Concomitant]
     Active Substance: NITROGLYCERIN
  33. DOXYCYCLINE HYCLATE. [Concomitant]
     Active Substance: DOXYCYCLINE HYCLATE
  34. TRIAMCINOLONE [Concomitant]
     Active Substance: TRIAMCINOLONE
  35. AZITHROMYCIN ANHYDROUS. [Concomitant]
     Active Substance: AZITHROMYCIN ANHYDROUS
  36. FUROSEMIDE. [Concomitant]
     Active Substance: FUROSEMIDE
  37. ACETAMINOPHEN. [Concomitant]
     Active Substance: ACETAMINOPHEN
  38. LEVOCETIRIZINE [Concomitant]
     Active Substance: LEVOCETIRIZINE
  39. LEVEMIR [Concomitant]
     Active Substance: INSULIN DETEMIR
  40. TERBINAFINE HYDROCHLORIDE. [Concomitant]
     Active Substance: TERBINAFINE HYDROCHLORIDE
  41. ONDANSETRON HYDROCHLORIDE. [Concomitant]
     Active Substance: ONDANSETRON HYDROCHLORIDE
  42. CEPHALEXIN. [Concomitant]
     Active Substance: CEPHALEXIN

REACTIONS (7)
  - Sepsis [Unknown]
  - Necrotising fasciitis [Unknown]
  - Fournier^s gangrene [Unknown]
  - Groin abscess [Unknown]
  - Necrotising soft tissue infection [Unknown]
  - Hypotension [Unknown]
  - Cellulitis [Unknown]

NARRATIVE: CASE EVENT DATE: 20150908
